FAERS Safety Report 26212064 (Version 1)
Quarter: 2025Q4

REPORT INFORMATION
  Report Type: Spontaneous
  Country: US (occurrence: US)
  Receive Date: 20251230
  Receipt Date: 20251230
  Transmission Date: 20260118
  Serious: Yes (Hospitalization, Other)
  Sender: STRIDES
  Company Number: US-STRIDES ARCOLAB LIMITED-2025SP016159

PATIENT
  Age: 54 Year
  Sex: Female

DRUGS (17)
  1. METRONIDAZOLE [Suspect]
     Active Substance: METRONIDAZOLE
     Indication: Enterobacter infection
     Dosage: UNK
     Route: 065
  2. METRONIDAZOLE [Suspect]
     Active Substance: METRONIDAZOLE
     Indication: Enterococcal infection
  3. METRONIDAZOLE [Suspect]
     Active Substance: METRONIDAZOLE
     Indication: Enterococcal infection
  4. MEROPENEM [Suspect]
     Active Substance: MEROPENEM
     Indication: Enterobacter infection
     Dosage: UNK
     Route: 065
  5. MEROPENEM [Suspect]
     Active Substance: MEROPENEM
     Indication: Enterococcal infection
  6. MEROPENEM [Suspect]
     Active Substance: MEROPENEM
     Indication: Enterococcal infection
  7. LINEZOLID [Suspect]
     Active Substance: LINEZOLID
     Indication: Enterobacter infection
     Dosage: UNK
     Route: 065
  8. LINEZOLID [Suspect]
     Active Substance: LINEZOLID
     Indication: Enterococcal infection
  9. LINEZOLID [Suspect]
     Active Substance: LINEZOLID
     Indication: Enterococcal infection
  10. FLUCONAZOLE [Suspect]
     Active Substance: FLUCONAZOLE
     Indication: Candida infection
     Dosage: UNK
     Route: 065
  11. FLUCONAZOLE [Suspect]
     Active Substance: FLUCONAZOLE
     Indication: Candida infection
  12. MICAFUNGIN [Suspect]
     Active Substance: MICAFUNGIN SODIUM
     Indication: Candida infection
     Dosage: UNK
     Route: 065
  13. LEVOFLOXACIN [Suspect]
     Active Substance: LEVOFLOXACIN
     Indication: Enterobacter infection
     Dosage: UNK
     Route: 065
  14. LEVOFLOXACIN [Suspect]
     Active Substance: LEVOFLOXACIN
     Indication: Enterococcal infection
  15. LEVOFLOXACIN [Suspect]
     Active Substance: LEVOFLOXACIN
     Indication: Enterococcal infection
  16. PIPERACILLIN AND TAZOBACTAM [Concomitant]
     Active Substance: PIPERACILLIN SODIUM\TAZOBACTAM SODIUM
     Indication: Staphylococcal infection
     Dosage: UNK
     Route: 065
  17. MICAFUNGIN [Concomitant]
     Active Substance: MICAFUNGIN SODIUM
     Indication: Candida infection
     Dosage: UNK
     Route: 065

REACTIONS (3)
  - Septic shock [Unknown]
  - Hypertransaminasaemia [Unknown]
  - Condition aggravated [Unknown]
